FAERS Safety Report 10435125 (Version 1)
Quarter: 2014Q3

REPORT INFORMATION
  Report Type: Spontaneous
  Country: US (occurrence: None)
  Receive Date: 20140703
  Receipt Date: 20140703
  Transmission Date: 20150326
  Serious: Yes (Other)
  Sender: FDA-Public Use
  Company Number: AUR-APL-2014-06145

PATIENT
  Age: 22 Year
  Sex: Male

DRUGS (1)
  1. TRIMETHOPRIM+SULFAMETHOXAZOLE [Suspect]
     Active Substance: SULFAMETHOXAZOLE\TRIMETHOPRIM
     Indication: ACNE
     Dosage: 480 MG, TWO TIMES A DAY, UNKNOWN

REACTIONS (8)
  - Hypersensitivity vasculitis [None]
  - Oedema peripheral [None]
  - Blood urine [None]
  - Complement factor C3 decreased [None]
  - Complement factor C4 decreased [None]
  - Scar [None]
  - C-reactive protein increased [None]
  - Skin hyperpigmentation [None]
